FAERS Safety Report 5148235-7 (Version None)
Quarter: 2006Q4

REPORT INFORMATION
  Report Type: 
  Country: None (occurrence: None)
  Receive Date: 20061106
  Receipt Date: 20061019
  Transmission Date: 20070319
  Serious: Yes (Life-Threatening, Hospitalization)
  Sender: FDA-Public Use
  Company Number: DSA_28928_2006

PATIENT
  Age: 28 Year
  Sex: Female

DRUGS (5)
  1. LORAZEPAM [Suspect]
     Dosage: 1 MG Q DAY; PO
     Route: 048
     Dates: start: 20050905, end: 20060911
  2. DEROXAT [Suspect]
     Dosage: 20 MG Q DAY; PO
     Route: 048
     Dates: start: 20060906, end: 20060911
  3. ZOLPIDEM TARTRATE [Suspect]
     Dosage: 10 MG Q DAY; PO
     Route: 048
     Dates: start: 20060906, end: 20060911
  4. TRANXENE [Suspect]
     Dosage: 10 MG TID; PO
     Route: 048
     Dates: start: 20060906, end: 20060911
  5. GESTODENE AND ETHINYL ESTRADIOL [Suspect]
     Dosage: DF ONCE; PO
     Route: 048
     Dates: start: 20060905, end: 20060905

REACTIONS (5)
  - ABDOMINAL PAIN LOWER [None]
  - AUTOIMMUNE HEPATITIS [None]
  - HEPATITIS C VIRUS [None]
  - HEPATITIS E [None]
  - INTENTIONAL OVERDOSE [None]
